FAERS Safety Report 13160255 (Version 6)
Quarter: 2017Q1

REPORT INFORMATION
  Report Type: Report from Study
  Country: AU (occurrence: AU)
  Receive Date: 20170127
  Receipt Date: 20170306
  Transmission Date: 20170428
  Serious: Yes (Hospitalization, Other)
  Sender: FDA-Public Use
  Company Number: AU-BRISTOL-MYERS SQUIBB COMPANY-BMS-2017-005553

PATIENT
  Age: 64 Year
  Sex: Male
  Weight: 110 kg

DRUGS (6)
  1. IPILIMUMAB [Suspect]
     Active Substance: IPILIMUMAB
     Indication: PRODUCT USED FOR UNKNOWN INDICATION
     Dosage: 1 DF(330UNIT NOS), UNK
     Route: 065
     Dates: start: 20170223, end: 20170223
  2. RAMIPRIL. [Concomitant]
     Active Substance: RAMIPRIL
     Indication: HYPERTENSION
     Dosage: 10 MG, UNK
     Route: 048
     Dates: start: 201506
  3. NIVOLUMAB [Suspect]
     Active Substance: NIVOLUMAB
     Indication: PRODUCT USED FOR UNKNOWN INDICATION
     Dosage: 1 DF(110UNIT NOS), UNK
     Route: 065
     Dates: start: 20170223, end: 20170223
  4. NIVOLUMAB [Suspect]
     Active Substance: NIVOLUMAB
     Indication: MALIGNANT MELANOMA
     Dosage: 1 DF(110UNIT NOS), UNK
     Route: 065
     Dates: start: 20161230, end: 20161230
  5. IPILIMUMAB [Suspect]
     Active Substance: IPILIMUMAB
     Indication: MALIGNANT MELANOMA
     Dosage: 1 DF(330UNIT NOS), UNK
     Route: 065
     Dates: start: 20161230, end: 20161230
  6. ASPRIN [Concomitant]
     Active Substance: ASPIRIN
     Indication: CARDIAC MURMUR
     Dosage: 100 MG, UNK
     Route: 048
     Dates: start: 201506, end: 20170121

REACTIONS (2)
  - Atrial fibrillation [Recovered/Resolved]
  - Basedow^s disease [Recovered/Resolved]

NARRATIVE: CASE EVENT DATE: 20170117
